FAERS Safety Report 8123773-3 (Version None)
Quarter: 2012Q1

REPORT INFORMATION
  Report Type: 
  Country: None (occurrence: None)
  Receive Date: 20120208
  Receipt Date: 20120201
  Transmission Date: 20120608
  Serious: Yes (Other)
  Sender: FDA-Public Use
  Company Number: BR-ASTRAZENECA-2012SE07181

PATIENT
  Age: 81 Year
  Sex: Female
  Weight: 62 kg

DRUGS (6)
  1. CRESTOR [Suspect]
     Indication: ARTERIAL OCCLUSIVE DISEASE
     Route: 048
     Dates: start: 20080101, end: 20110701
  2. ISOSORBIDE MONONITRATE [Concomitant]
     Route: 048
     Dates: start: 19920101
  3. ENALAPRIL MALEATE [Concomitant]
     Route: 048
     Dates: start: 19920101
  4. ATENOLOL [Suspect]
     Indication: HYPERTENSION
     Route: 048
     Dates: start: 19920101
  5. CARDIZEM [Concomitant]
     Route: 048
     Dates: start: 19920101
  6. CRESTOR [Suspect]
     Route: 048

REACTIONS (5)
  - ARTERIAL OCCLUSIVE DISEASE [None]
  - URINARY INCONTINENCE [None]
  - DRUG INEFFECTIVE [None]
  - DIABETES MELLITUS [None]
  - HERPES ZOSTER [None]
